FAERS Safety Report 9086150 (Version 1)
Quarter: 2013Q1

REPORT INFORMATION
  Report Type: Spontaneous
  Country: BR (occurrence: BR)
  Receive Date: 20130131
  Receipt Date: 20130131
  Transmission Date: 20140127
  Serious: Yes (Other)
  Sender: FDA-Public Use
  Company Number: BR-PFIZER INC-2013035922

PATIENT
  Age: 65 Year
  Sex: Female
  Weight: 68 kg

DRUGS (2)
  1. LYRICA [Suspect]
     Indication: PAIN
     Dosage: 75 MG 2X/DAY
     Route: 048
     Dates: start: 20121125
  2. LYRICA [Suspect]
     Indication: BACK PAIN

REACTIONS (2)
  - Back disorder [Unknown]
  - Drug ineffective [Not Recovered/Not Resolved]
